FAERS Safety Report 6717038-1 (Version None)
Quarter: 2010Q2

REPORT INFORMATION
  Report Type: 
  Country: None (occurrence: None)
  Receive Date: 20100505
  Receipt Date: 20100420
  Transmission Date: 20101027
  Serious: Yes (Hospitalization)
  Sender: FDA-Public Use
  Company Number: 2010001502

PATIENT
  Sex: Female
  Weight: 75.9 kg

DRUGS (3)
  1. ERLOTINIB (ERLOTINIB) (TABLET) (ERLOTINIB) [Suspect]
     Indication: ADENOCARCINOMA PANCREAS
     Dosage: (100 MG, QD), ORAL
     Route: 048
     Dates: start: 20100225, end: 20100408
  2. GEMCITABINE [Suspect]
     Indication: ADENOCARCINOMA PANCREAS
     Dosage: (1000 MG/M2, DAYS 1, 8 AND 15) INTRAVENOUS
     Route: 042
     Dates: start: 20100225, end: 20100408
  3. IMC-A12 [Suspect]
     Indication: ADENOCARCINOMA PANCREAS
     Dosage: (6 MG/KG, DAYS 1, 8, 15 AND 22), INTRAVENOUS
     Route: 042
     Dates: start: 20100225, end: 20100408

REACTIONS (6)
  - ABDOMINAL DISTENSION [None]
  - DEHYDRATION [None]
  - FATIGUE [None]
  - HYPOALBUMINAEMIA [None]
  - TUMOUR PAIN [None]
  - URINARY TRACT INFECTION [None]
